FAERS Safety Report 5079639-9 (Version None)
Quarter: 2006Q3

REPORT INFORMATION
  Report Type: 
  Country: None (occurrence: None)
  Receive Date: 20060808
  Receipt Date: 20060724
  Transmission Date: 20061208
  Serious: Yes (Life-Threatening, Hospitalization)
  Sender: FDA-Public Use
  Company Number: VER_0015_2006

PATIENT
  Age: 25 Year
  Sex: Female
  Weight: 45.3597 kg

DRUGS (5)
  1. TWINJET (EPINEPHRINE) [Suspect]
     Indication: FOOD ALLERGY
     Dosage: 1 DF ONCE SC
     Route: 058
     Dates: start: 20060101, end: 20060101
  2. TWINJET (EPINEPHRINE) [Suspect]
     Indication: FOOD ALLERGY
     Dosage: 1 DF ONCE SC
     Route: 058
     Dates: start: 20060101, end: 20060101
  3. ADVAIR DISKUS 100/50 [Concomitant]
  4. RHINOCORT [Concomitant]
  5. SALBUTEROL [Concomitant]

REACTIONS (1)
  - DEVICE FAILURE [None]
